FAERS Safety Report 4802383-7 (Version None)
Quarter: 2005Q4

REPORT INFORMATION
  Report Type: 
  Country: None (occurrence: None)
  Receive Date: 20051013
  Receipt Date: 20051003
  Transmission Date: 20060501
  Serious: Yes (Disabling, Other)
  Sender: FDA-Public Use
  Company Number: 2005137863

PATIENT
  Age: 63 Year
  Sex: Male
  Weight: 108.8633 kg

DRUGS (5)
  1. ACCUPRIL [Suspect]
     Indication: HYPERTENSION
     Dosage: (DAILY INTERVAL: EVERY DAY), ORAL
     Route: 048
     Dates: start: 20040101
  2. ACTOS [Concomitant]
  3. LIPITOR [Concomitant]
  4. ASPIRIN [Concomitant]
  5. OTHER UNKNOWN (DRUG, UNSPEICIFED) [Concomitant]

REACTIONS (3)
  - GANGRENE [None]
  - LEG AMPUTATION [None]
  - POOR PERIPHERAL CIRCULATION [None]
